FAERS Safety Report 10935642 (Version 3)
Quarter: 2015Q2

REPORT INFORMATION
  Report Type: Spontaneous
  Country: US (occurrence: US)
  Receive Date: 20150320
  Receipt Date: 20150609
  Transmission Date: 20150821
  Serious: Yes (Death, Hospitalization, Other)
  Sender: FDA-Public Use
  Company Number: US-MERCK-1503USA009605

PATIENT
  Sex: Male
  Weight: 97.51 kg

DRUGS (1)
  1. JANUVIA [Suspect]
     Active Substance: SITAGLIPTIN PHOSPHATE
     Indication: TYPE 2 DIABETES MELLITUS
     Dosage: 100 MG, QD
     Route: 048
     Dates: start: 201106, end: 201109

REACTIONS (27)
  - Pancytopenia [Unknown]
  - Limb injury [Unknown]
  - Hepatic steatosis [Unknown]
  - Neutropenia [Unknown]
  - Metastases to liver [Unknown]
  - Gastrointestinal haemorrhage [Unknown]
  - Drug eruption [Recovering/Resolving]
  - Pancreaticoduodenectomy [Unknown]
  - Alopecia [Unknown]
  - Coronary arterial stent insertion [Unknown]
  - Thrombocytopenia [Unknown]
  - Pancreatic carcinoma metastatic [Unknown]
  - Death [Fatal]
  - Postoperative fever [Unknown]
  - Dyspnoea [Unknown]
  - Rash vesicular [Recovered/Resolved]
  - Wound infection [Unknown]
  - Hypertension [Unknown]
  - Cholecystitis chronic [Not Recovered/Not Resolved]
  - Drug eruption [Unknown]
  - Diarrhoea [Unknown]
  - Cellulitis [Unknown]
  - Dehydration [Unknown]
  - Gout [Unknown]
  - Postoperative abscess [Unknown]
  - Clostridium difficile colitis [Unknown]
  - Anaemia [Unknown]

NARRATIVE: CASE EVENT DATE: 2011
